FAERS Safety Report 6803297-3 (Version None)
Quarter: 2010Q2

REPORT INFORMATION
  Report Type: 
  Country: None (occurrence: None)
  Receive Date: 20100628
  Receipt Date: 20100617
  Transmission Date: 20101027
  Serious: Yes (Hospitalization)
  Sender: FDA-Public Use
  Company Number: JP-PFIZER INC-2010064529

PATIENT
  Age: 88 Year
  Sex: Male
  Weight: 49 kg

DRUGS (11)
  1. SULPERAZON [Suspect]
     Indication: PNEUMONIA
     Dosage: 1 G, 2X/DAY
     Route: 042
     Dates: start: 20100512, end: 20100518
  2. PENTCILLIN [Concomitant]
     Indication: PNEUMONIA
     Dosage: 2 G, 2X/DAY
     Route: 042
     Dates: start: 20100507, end: 20100512
  3. PENTCILLIN [Concomitant]
     Dosage: 1 G, 2X/DAY
     Route: 042
     Dates: start: 20100419, end: 20100426
  4. GARENOXACIN MESILATE [Concomitant]
     Indication: PNEUMONIA
     Dosage: 400 MG, 1X/DAY
     Route: 048
     Dates: start: 20100507, end: 20100507
  5. CRAVIT [Concomitant]
     Indication: PNEUMONIA
     Dosage: 500 MG, 1X/DAY
     Route: 048
     Dates: start: 20100508, end: 20100511
  6. ARICEPT [Concomitant]
     Indication: DEMENTIA ALZHEIMER'S TYPE
     Dosage: 10 MG, 1X/DAY
     Route: 048
     Dates: start: 20100224, end: 20100419
  7. SUNRYTHM [Concomitant]
     Indication: ATRIAL FIBRILLATION
     Dosage: 50 MG, 3X/DAY
     Route: 048
     Dates: start: 20090708
  8. GASMOTIN [Concomitant]
     Indication: CONSTIPATION
     Dosage: 5 MEQ/L, 3X/DAY
     Route: 048
     Dates: start: 20090902, end: 20100419
  9. TETRAMIDE [Concomitant]
     Indication: DELIRIUM
     Dosage: 20 MG, 2X/DAY
     Route: 048
     Dates: start: 20090902, end: 20100422
  10. RISPERDAL [Concomitant]
     Indication: DELIRIUM
     Dosage: 1 MG, 1X/DAY
     Route: 048
     Dates: start: 20100430, end: 20100506
  11. BISOLVON [Concomitant]
     Indication: PRODUCTIVE COUGH
     Dosage: 8 MG, 2X/DAY
     Route: 042
     Dates: start: 20100511, end: 20100522

REACTIONS (1)
  - COAGULATION TEST ABNORMAL [None]
